FAERS Safety Report 5148719-1 (Version None)
Quarter: 2006Q4

REPORT INFORMATION
  Report Type: 
  Country: None (occurrence: None)
  Receive Date: 20061107
  Receipt Date: 20061023
  Transmission Date: 20070319
  Serious: Yes (Other)
  Sender: FDA-Public Use
  Company Number: 2006BI015525

PATIENT
  Age: 58 Year
  Sex: Female

DRUGS (3)
  1. NATALIZUMAB [Suspect]
     Indication: MULTIPLE SCLEROSIS
     Dosage: 300 MG QW IV
     Route: 042
     Dates: start: 20050215, end: 20050215
  2. NATALIZUMAB [Suspect]
     Indication: MULTIPLE SCLEROSIS
     Dosage: 300 MG QM IV
     Route: 042
     Dates: start: 20060923, end: 20060923
  3. NATALIZUMAB [Suspect]
     Indication: MULTIPLE SCLEROSIS
     Dosage: 240 MG QM IV
     Route: 042
     Dates: start: 20061021, end: 20061021

REACTIONS (4)
  - DYSPHAGIA [None]
  - INFUSION RELATED REACTION [None]
  - RASH PRURITIC [None]
  - URTICARIA GENERALISED [None]
